FAERS Safety Report 20713030 (Version 1)
Quarter: 2022Q2

REPORT INFORMATION
  Report Type: Report from Study
  Country: IT (occurrence: IT)
  Receive Date: 20220415
  Receipt Date: 20220415
  Transmission Date: 20220721
  Serious: Yes (Other)
  Sender: FDA-Public Use
  Company Number: None

PATIENT
  Age: 61 Year
  Sex: Male

DRUGS (8)
  1. LITHIUM CARBONATE [Suspect]
     Active Substance: LITHIUM CARBONATE
     Dosage: DURATION 54DAYS,THERAPEUTIC ERROR
     Route: 065
     Dates: start: 20220101, end: 20220224
  2. QUETIAPINE [Suspect]
     Active Substance: QUETIAPINE
     Dosage: DURATION 54DAYS
     Route: 065
     Dates: start: 20220101, end: 20220224
  3. VALPROATE SODIUM [Suspect]
     Active Substance: VALPROATE SODIUM
     Dosage: DURATION 54DAYS
     Route: 065
     Dates: start: 20220101, end: 20220224
  4. TRAZODONE HYDROCHLORIDE [Suspect]
     Active Substance: TRAZODONE HYDROCHLORIDE
     Dosage: DURATION 54DAYS
     Route: 065
     Dates: start: 20220101, end: 20220224
  5. PAROXETINE [Suspect]
     Active Substance: PAROXETINE
     Dosage: DURATION 54DAYS
     Route: 065
     Dates: start: 20220101, end: 20220224
  6. CLOPIDOGREL [Concomitant]
     Active Substance: CLOPIDOGREL BISULFATE
  7. BRINTELLIX [Concomitant]
     Active Substance: VORTIOXETINE HYDROBROMIDE
  8. METFORMIN HYDROCHLORIDE [Concomitant]
     Active Substance: METFORMIN HYDROCHLORIDE

REACTIONS (4)
  - Tremor [Recovering/Resolving]
  - Antipsychotic drug level increased [Recovering/Resolving]
  - Tremor [Recovering/Resolving]
  - Medication error [Recovering/Resolving]

NARRATIVE: CASE EVENT DATE: 20220224
